FAERS Safety Report 13876507 (Version 1)
Quarter: 2017Q3

REPORT INFORMATION
  Report Type: Spontaneous
  Country: US (occurrence: US)
  Receive Date: 20170816
  Receipt Date: 20170816
  Transmission Date: 20171127
  Serious: No
  Sender: FDA-Public Use
  Company Number: None

PATIENT
  Age: 50 Year
  Sex: Female
  Weight: 63 kg

DRUGS (3)
  1. LEVOTHYROXINE SODIUM. [Concomitant]
     Active Substance: LEVOTHYROXINE SODIUM
  2. LEVOTHYROXINE SODIUM 125 MCG TAB [Suspect]
     Active Substance: LEVOTHYROXINE SODIUM
     Indication: BASEDOW^S DISEASE
     Dosage: ?          QUANTITY:30 ;?
     Route: 048
     Dates: start: 20061130, end: 20170805
  3. ESTRADIOL. [Concomitant]
     Active Substance: ESTRADIOL

REACTIONS (7)
  - Product substitution issue [None]
  - Psychomotor hyperactivity [None]
  - Irritability [None]
  - Insomnia [None]
  - Nausea [None]
  - Decreased appetite [None]
  - Pruritus [None]

NARRATIVE: CASE EVENT DATE: 20170308
